FAERS Safety Report 8773117 (Version 1)
Quarter: 2012Q4

REPORT INFORMATION
  Report Type: 
  Country: US (occurrence: US)
  Receive Date: 20120907
  Receipt Date: 20120907
  Transmission Date: 20130627
  Serious: Yes (Other)
  Sender: FDA-Public Use
  Company Number: US-ASTELLAS-2012US007474

PATIENT
  Sex: Female
  Weight: 62 kg

DRUGS (1)
  1. VESICARE [Suspect]
     Indication: STRESS URINARY INCONTINENCE
     Dosage: 5 mg, UID/QD
     Route: 048
     Dates: end: 2012

REACTIONS (1)
  - Cerebrovascular accident [Unknown]
